FAERS Safety Report 6256436-X (Version None)
Quarter: 2009Q3

REPORT INFORMATION
  Report Type: 
  Country: None (occurrence: None)
  Receive Date: 20090706
  Receipt Date: 20090629
  Transmission Date: 20100115
  Serious: Yes (Hospitalization, Other)
  Sender: FDA-Public Use
  Company Number: US-ASTRAZENECA-2009UW18170

PATIENT
  Age: 62 Year
  Sex: Male
  Weight: 84.5 kg

DRUGS (8)
  1. SEROQUEL [Suspect]
     Indication: SLEEP DISORDER
     Route: 048
     Dates: start: 20090512
  2. SEROQUEL [Suspect]
     Indication: RELAXATION THERAPY
     Route: 048
     Dates: start: 20090512
  3. SEROQUEL [Suspect]
     Route: 048
     Dates: start: 20090512
  4. SEROQUEL [Suspect]
     Route: 048
     Dates: start: 20090512
  5. SEROQUEL [Suspect]
     Route: 048
     Dates: start: 20090512
  6. SEROQUEL [Suspect]
     Route: 048
     Dates: start: 20090512
  7. ABILIFY [Suspect]
  8. REMERON [Concomitant]

REACTIONS (12)
  - ATROPHY [None]
  - DIZZINESS [None]
  - EATING DISORDER [None]
  - FALL [None]
  - GAIT DISTURBANCE [None]
  - HAEMORRHAGE [None]
  - INCONTINENCE [None]
  - OEDEMA PERIPHERAL [None]
  - PERSONALITY CHANGE [None]
  - SWOLLEN TONGUE [None]
  - WEIGHT BEARING DIFFICULTY [None]
  - WEIGHT DECREASED [None]
